FAERS Safety Report 9016485 (Version 2)
Quarter: 2013Q3

REPORT INFORMATION
  Report Type: Spontaneous
  Country: BR (occurrence: BR)
  Receive Date: 20130116
  Receipt Date: 20130705
  Transmission Date: 20140515
  Serious: Yes (Other)
  Sender: FDA-Public Use
  Company Number: BR-JNJFOC-20130105178

PATIENT
  Age: 61 Year
  Sex: Female
  Weight: 54 kg

DRUGS (5)
  1. XARELTO [Suspect]
     Indication: PRODUCT USED FOR UNKNOWN INDICATION
     Route: 048
     Dates: start: 20120807, end: 20130128
  2. XARELTO [Suspect]
     Indication: PRODUCT USED FOR UNKNOWN INDICATION
     Route: 048
     Dates: start: 201303
  3. XELODA [Suspect]
     Indication: CHEMOTHERAPY
     Route: 048
     Dates: start: 20120723, end: 20121231
  4. OXALIPLATIN [Suspect]
     Indication: CHEMOTHERAPY
     Route: 042
     Dates: start: 20120723, end: 20121231
  5. IRINOTECAN [Concomitant]
     Indication: CHEMOTHERAPY
     Route: 042
     Dates: start: 20130520

REACTIONS (8)
  - Platelet count decreased [Recovered/Resolved]
  - Weight decreased [Unknown]
  - Pain in extremity [Unknown]
  - Vomiting [Unknown]
  - Decreased appetite [Recovered/Resolved]
  - Dehydration [Unknown]
  - Diarrhoea [Unknown]
  - Aerophagia [Unknown]
